FAERS Safety Report 4667272-X (Version None)
Quarter: 2005Q2

REPORT INFORMATION
  Report Type: 
  Country: None (occurrence: None)
  Receive Date: 20050520
  Receipt Date: 20040907
  Transmission Date: 20051028
  Serious: Yes (Other)
  Sender: FDA-Public Use
  Company Number: PHEH2004US09614

PATIENT
  Age: 72 Year
  Sex: Female

DRUGS (11)
  1. ZOMETA [Suspect]
     Indication: MULTIPLE MYELOMA
     Dosage: 4 MG MONTHLY
     Route: 042
     Dates: start: 20020101
  2. AUGMENTIN '125' [Concomitant]
  3. FUROSEMIDE [Concomitant]
     Dosage: 10 UNK, QD
     Route: 048
  4. TOPROL-XL [Concomitant]
     Dosage: 25 MG, BID
     Route: 048
  5. ACCUPRIL [Concomitant]
     Dosage: 20 MG, QD
     Route: 048
  6. IBUPROFEN [Concomitant]
     Indication: PAIN
     Dosage: 400 MG, UNK
  7. MEDROL [Concomitant]
     Indication: MULTIPLE MYELOMA
     Dosage: 60 MG, QOD
     Dates: start: 20021201
  8. VICODIN ES [Concomitant]
     Indication: PAIN
     Dosage: 1500 MG, PRN
     Dates: start: 20030101
  9. VINCRISTINE + ADRIAMYCIN + DEXAMETHASONE [Concomitant]
     Indication: MULTIPLE MYELOMA
     Dates: start: 20020101, end: 20020101
  10. DOXORUBICIN HCL [Concomitant]
  11. POTASSIUM CHLORIDE [Concomitant]

REACTIONS (2)
  - OSTEONECROSIS [None]
  - TOOTH EXTRACTION [None]
